FAERS Safety Report 5266475-3 (Version None)
Quarter: 2007Q1

REPORT INFORMATION
  Report Type: 
  Country: None (occurrence: None)
  Receive Date: 20070315
  Receipt Date: 20070305
  Transmission Date: 20070707
  Serious: Yes (Hospitalization, Other)
  Sender: FDA-Public Use
  Company Number: BR-ABBOTT-07P-020-0361389-00

PATIENT
  Sex: Female
  Weight: 50 kg

DRUGS (6)
  1. DEPAKOTE ER [Suspect]
     Indication: BIPOLAR DISORDER
     Route: 048
  2. LAMOTRIGINE [Interacting]
     Indication: BIPOLAR DISORDER
     Route: 048
  3. LAMOTRIGINE [Interacting]
     Route: 048
  4. FLUOXETINE [Concomitant]
     Indication: BIPOLAR DISORDER
     Route: 048
  5. OLANZAPINE [Concomitant]
     Indication: BIPOLAR DISORDER
     Route: 048
  6. BUPROPION HYDROCHLORIDE [Concomitant]
     Indication: BIPOLAR DISORDER
     Route: 048

REACTIONS (9)
  - ACUTE PULMONARY OEDEMA [None]
  - BLOOD PRESSURE INCREASED [None]
  - DEPRESSION [None]
  - DRUG INTERACTION [None]
  - MOOD SWINGS [None]
  - PLATELET COUNT DECREASED [None]
  - PNEUMONIA [None]
  - RASH [None]
  - WHITE BLOOD CELL COUNT DECREASED [None]
